FAERS Safety Report 4853685-X (Version None)
Quarter: 2005Q4

REPORT INFORMATION
  Report Type: 
  Country: None (occurrence: None)
  Receive Date: 20051214
  Receipt Date: 20051122
  Transmission Date: 20060501
  Serious: Yes (Other)
  Sender: FDA-Public Use
  Company Number: ID-AVENTIS-200520358GDDC

PATIENT
  Age: 64 Year
  Sex: Female
  Weight: 75 kg

DRUGS (2)
  1. AMARYL [Suspect]
     Indication: DIABETES MELLITUS NON-INSULIN-DEPENDENT
     Route: 048
  2. NEUROBION [Concomitant]
     Dosage: DOSE: 2 TABLETS DAILY
     Route: 048

REACTIONS (6)
  - BLOOD GLUCOSE INCREASED [None]
  - DRUG ERUPTION [None]
  - DRUG HYPERSENSITIVITY [None]
  - RASH [None]
  - SKIN EXFOLIATION [None]
  - URTICARIA [None]
